FAERS Safety Report 10243227 (Version 5)
Quarter: 2014Q3

REPORT INFORMATION
  Report Type: Spontaneous
  Country: US (occurrence: None)
  Receive Date: 20140616
  Receipt Date: 20140811
  Transmission Date: 20150326
  Serious: Yes (Other)
  Sender: FDA-Public Use
  Company Number: UTC-046656

PATIENT
  Age: 72 Year
  Sex: Male
  Weight: 83.5 kg

DRUGS (2)
  1. TRACLEER (BOSENTAN) UNKNOWN [Concomitant]
  2. TYVASO [Suspect]
     Active Substance: TREPROSTINIL
     Indication: PULMONARY ARTERIAL HYPERTENSION
     Dosage: 18-54 MICROGRAMS, QID, INHALATION
     Route: 055
     Dates: start: 20140319, end: 20140609

REACTIONS (12)
  - Cough [None]
  - Drug ineffective [None]
  - Oxygen saturation decreased [None]
  - Skin discolouration [None]
  - Chest discomfort [None]
  - Musculoskeletal discomfort [None]
  - Pulmonary fibrosis [None]
  - Fatigue [None]
  - Haemoptysis [None]
  - Hypotension [None]
  - Pneumonia [None]
  - Chills [None]

NARRATIVE: CASE EVENT DATE: 20140320
